FAERS Safety Report 9016688 (Version 3)
Quarter: 2017Q3

REPORT INFORMATION
  Report Type: Spontaneous
  Country: US (occurrence: US)
  Receive Date: 20130116
  Receipt Date: 20170927
  Transmission Date: 20171128
  Serious: Yes (Hospitalization, Other)
  Sender: FDA-Public Use
  Company Number: US-ROCHE-1179731

PATIENT
  Age: 59 Year
  Sex: Female

DRUGS (2)
  1. FOSAMAX [Suspect]
     Active Substance: ALENDRONATE SODIUM
     Indication: OSTEOPOROSIS
     Route: 048
     Dates: start: 2000, end: 200203
  2. BONIVA [Suspect]
     Active Substance: IBANDRONATE SODIUM
     Indication: OSTEOPOROSIS
     Route: 048
     Dates: start: 200510, end: 201101

REACTIONS (7)
  - Blood cholesterol increased [Recovered/Resolved]
  - Anaemia [Recovered/Resolved]
  - Benign breast neoplasm [Unknown]
  - Emotional distress [Unknown]
  - Femur fracture [Unknown]
  - Low turnover osteopathy [Unknown]
  - Anxiety [Unknown]

NARRATIVE: CASE EVENT DATE: 20051129
